FAERS Safety Report 9523986 (Version 1)
Quarter: 2013Q3

REPORT INFORMATION
  Report Type: Spontaneous
  Country: US (occurrence: None)
  Receive Date: 20130912
  Receipt Date: 20130912
  Transmission Date: 20140515
  Serious: Yes (Hospitalization)
  Sender: FDA-Public Use
  Company Number: None

PATIENT
  Age: 87 Year
  Sex: Male
  Weight: 65.3 kg

DRUGS (8)
  1. INVANZ [Suspect]
     Indication: ESCHERICHIA URINARY TRACT INFECTION
     Dosage: 1 DOSE
     Route: 042
  2. LISINOPRIL [Concomitant]
  3. MELOXICAM [Concomitant]
  4. PANTOPRAZOLE [Concomitant]
  5. CARAFATE [Concomitant]
  6. AMBIEN [Concomitant]
  7. ZOFRAN [Concomitant]
  8. GLYCOLAX [Concomitant]

REACTIONS (1)
  - Chest pain [None]
